FAERS Safety Report 8723131 (Version 5)
Quarter: 2012Q4

REPORT INFORMATION
  Report Type: 
  Country: JP (occurrence: JP)
  Receive Date: 20120814
  Receipt Date: 20121008
  Transmission Date: 20130627
  Serious: Yes (Life-Threatening, Hospitalization)
  Sender: FDA-Public Use
  Company Number: JP-BAYER-2012-080950

PATIENT
  Age: 67 Year
  Sex: Male
  Weight: 60 kg

DRUGS (8)
  1. BAYASPIRIN [Suspect]
     Indication: ANGINA UNSTABLE
     Dosage: Daily dose 100 mg
     Route: 048
     Dates: start: 201112
  2. PLAVIX [Suspect]
     Indication: ANGINA UNSTABLE
     Dosage: Daily dose 75 mg
     Route: 048
     Dates: start: 201112
  3. PARIET [Concomitant]
     Indication: GASTRITIS PROPHYLAXIS
     Dosage: Daily dose 10 mg
     Route: 048
     Dates: start: 201112
  4. REBAMIPIDE [Concomitant]
     Indication: GASTRITIS PROPHYLAXIS
     Route: 048
  5. EPADEL [Concomitant]
     Indication: HYPERLIPIDAEMIA
     Dosage: Daily dose 1800 mg
     Route: 048
  6. LIVALO [Concomitant]
     Indication: HYPERLIPIDAEMIA
     Dosage: Daily dose 1 mg
     Route: 048
  7. GLACTIV [Concomitant]
     Indication: DIABETES MELLITUS
     Dosage: Daily dose 50 mg
     Route: 048
  8. MILLIS [Concomitant]
     Indication: ANGINA UNSTABLE
     Dosage: Daily dose 5 mg
     Route: 062

REACTIONS (3)
  - Lipoma [Recovered/Resolved]
  - Tumour haemorrhage [Recovered/Resolved]
  - Intussusception [Recovered/Resolved]
